FAERS Safety Report 12925614 (Version 1)
Quarter: 2016Q4

REPORT INFORMATION
  Report Type: Spontaneous
  Country: DE (occurrence: DE)
  Receive Date: 20161109
  Receipt Date: 20161109
  Transmission Date: 20170207
  Serious: Yes (Life-Threatening, Hospitalization)
  Sender: FDA-Public Use
  Company Number: GXKR2016DE005016

PATIENT

DRUGS (2)
  1. PREDNISON [Suspect]
     Active Substance: PREDNISONE
     Indication: THERAPEUTIC PROCEDURE
     Dosage: 100 MG, UNK
     Route: 048
  2. ELIQUIS [Suspect]
     Active Substance: APIXABAN
     Indication: ATRIAL FIBRILLATION
     Dosage: DAILY DOSE: 10 MG MILLIGRAM(S) EVERY DAY
     Route: 048
     Dates: start: 201403

REACTIONS (5)
  - Autoimmune haemolytic anaemia [Not Recovered/Not Resolved]
  - Blood glucose increased [Unknown]
  - Performance status decreased [Unknown]
  - Respiratory distress [Unknown]
  - Chromaturia [Unknown]

NARRATIVE: CASE EVENT DATE: 201608
